FAERS Safety Report 19650613 (Version 6)
Quarter: 2022Q3

REPORT INFORMATION
  Report Type: Report from Study
  Country: US (occurrence: US)
  Receive Date: 20210803
  Receipt Date: 20220815
  Transmission Date: 20221027
  Serious: No
  Sender: FDA-Public Use
  Company Number: NVSC2021US167075

PATIENT
  Age: 37 Year
  Sex: Female

DRUGS (3)
  1. COSENTYX [Suspect]
     Active Substance: SECUKINUMAB
     Indication: Psoriasis
     Dosage: 300 MG, QW(ONCE WEEK FOR FIVE WEEKS)
     Route: 058
     Dates: start: 20190101
  2. COSENTYX [Suspect]
     Active Substance: SECUKINUMAB
     Dosage: 300 MG, QMO
     Route: 058
  3. COSENTYX [Suspect]
     Active Substance: SECUKINUMAB
     Dosage: 300 MG, QW ( Q WEEK FOR FIVE WEEKS AND THEN Q FOUR WEEKS)
     Route: 058
     Dates: start: 20190101

REACTIONS (4)
  - Psoriasis [Unknown]
  - Pruritus [Unknown]
  - Skin irritation [Unknown]
  - Product dose omission issue [Unknown]

NARRATIVE: CASE EVENT DATE: 20210720
